FAERS Safety Report 8016069-1 (Version None)
Quarter: 2011Q4

REPORT INFORMATION
  Report Type: 
  Country: None (occurrence: None)
  Receive Date: 20111230
  Receipt Date: 20111222
  Transmission Date: 20120403
  Serious: Yes (Other)
  Sender: FDA-Public Use
  Company Number: BR-ABBOTT-11P-020-0883536-00

PATIENT
  Sex: Female
  Weight: 69 kg

DRUGS (11)
  1. TIBOLONE [Concomitant]
     Indication: HORMONE REPLACEMENT THERAPY
     Route: 048
  2. ACETAMINOPHEN [Concomitant]
     Indication: PAIN
     Route: 048
  3. TIMOLOL MALEATE [Concomitant]
     Indication: PAIN
     Route: 048
  4. FAMOTIDINE [Concomitant]
     Indication: PAIN
     Route: 048
  5. FLUOXETINE [Concomitant]
     Indication: AFFECTIVE DISORDER
     Route: 048
  6. PREDNISONE TAB [Concomitant]
     Indication: PAIN
     Route: 048
  7. CYCLOBENZAPRINE [Concomitant]
     Indication: PAIN
     Route: 048
  8. OMEPRAZOLE [Concomitant]
     Indication: GASTRIC DISORDER
     Route: 048
  9. CODEINE [Concomitant]
     Indication: PAIN
     Route: 048
  10. HUMIRA [Suspect]
     Indication: RHEUMATOID ARTHRITIS
     Route: 058
     Dates: start: 20101201
  11. CORTISONE ACETATE [Concomitant]
     Indication: INFLAMMATION
     Route: 048

REACTIONS (2)
  - INTERVERTEBRAL DISC PROTRUSION [None]
  - ABASIA [None]
